FAERS Safety Report 24081327 (Version 1)
Quarter: 2024Q3

REPORT INFORMATION
  Report Type: Spontaneous
  Country: US (occurrence: US)
  Receive Date: 20240711
  Receipt Date: 20240711
  Transmission Date: 20241016
  Serious: No
  Sender: BAUSCH AND LOMB
  Company Number: US-BAUSCHBL-2024BNL029614

PATIENT

DRUGS (1)
  1. ALAWAY [Suspect]
     Active Substance: KETOTIFEN FUMARATE
     Indication: Eye pruritus
     Route: 065
     Dates: start: 202301

REACTIONS (6)
  - Ocular hyperaemia [Recovered/Resolved]
  - Secretion discharge [Not Recovered/Not Resolved]
  - Vision blurred [Not Recovered/Not Resolved]
  - Dry eye [Not Recovered/Not Resolved]
  - Condition aggravated [Unknown]
  - Eye pruritus [Unknown]

NARRATIVE: CASE EVENT DATE: 20230101
